FAERS Safety Report 9554473 (Version 2)
Quarter: 2013Q4

REPORT INFORMATION
  Report Type: Report from Study
  Country: PH (occurrence: PH)
  Receive Date: 20130925
  Receipt Date: 20131001
  Transmission Date: 20140711
  Serious: Yes (Hospitalization)
  Sender: FDA-Public Use
  Company Number: PH-ROCHE-1278354

PATIENT
  Age: 51 Year
  Sex: Female
  Weight: 52.7 kg

DRUGS (12)
  1. TRASTUZUMAB [Suspect]
     Indication: HER-2 POSITIVE BREAST CANCER
     Route: 042
     Dates: start: 20121203, end: 20121203
  2. TRASTUZUMAB [Suspect]
     Dosage: DATE OF LAST DOSE PRIOR TO SAE 05/SEP/2013 (MAINTENANCE DOSE: 300 MG)
     Route: 042
  3. SITAGLIPTIN [Concomitant]
     Route: 065
     Dates: start: 20121105, end: 20130911
  4. GLIMEPIRIDE/METFORMIN HYDROCHLORIDE [Concomitant]
     Dosage: 2/500 MG
     Route: 065
     Dates: start: 20130701, end: 20130911
  5. PARACETAMOL [Concomitant]
     Route: 065
     Dates: start: 20121203
  6. SILYMARIN [Concomitant]
     Route: 065
     Dates: start: 20121012
  7. VITAMIN B COMPLEX [Concomitant]
     Route: 065
     Dates: start: 20130321
  8. LOSARTAN [Concomitant]
     Route: 065
     Dates: start: 20130301
  9. FENOFIBRATE [Concomitant]
     Route: 065
     Dates: start: 20121109
  10. INSULIN LISPRO [Concomitant]
  11. MONTELUKAST [Concomitant]
  12. PLACEBO [Suspect]
     Indication: BREAST CANCER
     Dosage: DATE OF LAST DOSE PRIOR TO SAE 05/SEP/2013
     Route: 042
     Dates: start: 20121203

REACTIONS (1)
  - Asthma [Recovered/Resolved]
